FAERS Safety Report 20313652 (Version 2)
Quarter: 2022Q1

REPORT INFORMATION
  Report Type: Spontaneous
  Country: US (occurrence: US)
  Receive Date: 20220109
  Receipt Date: 20220209
  Transmission Date: 20220424
  Serious: No
  Sender: FDA-Public Use
  Company Number: US-SA-SAC20220102000348

PATIENT
  Sex: Female

DRUGS (17)
  1. DUPIXENT [Suspect]
     Active Substance: DUPILUMAB
     Indication: Dermatitis atopic
     Dosage: 300 MG, QOW
     Route: 058
     Dates: start: 202112
  2. ATENOLOL [Concomitant]
     Active Substance: ATENOLOL
  3. VITAMIN B12 [Concomitant]
     Active Substance: CYANOCOBALAMIN
  4. MAGNESIUM [Concomitant]
     Active Substance: MAGNESIUM
  5. CLOBETASOL PROPIONATE [Concomitant]
     Active Substance: CLOBETASOL PROPIONATE
  6. EUCERIN [SALICYLIC ACID] [Concomitant]
  7. CORTAID [HYDROCORTISONE] [Concomitant]
  8. AFLURIA QUAD [Concomitant]
  9. FISH OIL [Concomitant]
     Active Substance: FISH OIL
  10. VITAMIN D3 [Concomitant]
     Active Substance: CHOLECALCIFEROL
  11. VITAMIN C [Concomitant]
     Active Substance: ASCORBIC ACID
  12. VITAMINS [Concomitant]
     Active Substance: VITAMINS
  13. ENTOCORT EC [Concomitant]
     Active Substance: BUDESONIDE
  14. DESMOPRESSIN ACETATE [Concomitant]
     Active Substance: DESMOPRESSIN ACETATE
  15. LISINOPRIL [Concomitant]
     Active Substance: LISINOPRIL
  16. BUTALBITAL, ACETAMINOPHEN, AND CAFFEINE [Concomitant]
     Active Substance: ACETAMINOPHEN\BUTALBITAL\CAFFEINE
  17. MODERNA COVID-19 VACCINE [Concomitant]
     Active Substance: ELASOMERAN

REACTIONS (5)
  - Pruritus [Unknown]
  - Pain [Unknown]
  - Scratch [Unknown]
  - Skin haemorrhage [Unknown]
  - Product dose omission issue [Unknown]
